FAERS Safety Report 11444024 (Version 3)
Quarter: 2016Q1

REPORT INFORMATION
  Report Type: Report from Study
  Country: IL (occurrence: IL)
  Receive Date: 20150901
  Receipt Date: 20160203
  Transmission Date: 20160525
  Serious: Yes (Hospitalization, Other)
  Sender: FDA-Public Use
  Company Number: IL-AMGEN-ISRSL2015073734

PATIENT
  Age: 17 Year
  Sex: Male
  Weight: 54 kg

DRUGS (6)
  1. BLINATUMOMAB [Suspect]
     Active Substance: BLINATUMOMAB
     Indication: PRECURSOR B-LYMPHOBLASTIC LYMPHOMA RECURRENT
     Dosage: 23 MUG, QD
     Route: 042
     Dates: start: 20150607
  2. DAPSONE. [Concomitant]
     Active Substance: DAPSONE
     Indication: PROPHYLAXIS
     Dosage: 200 MG, QWK
     Route: 048
  3. CIPROFLOXACIN. [Concomitant]
     Active Substance: CIPROFLOXACIN
     Indication: CELLULITIS
     Dosage: 500 MG, X 21 DAYS
     Route: 048
     Dates: start: 20150607, end: 20150706
  4. VORICONAZOLE. [Concomitant]
     Active Substance: VORICONAZOLE
     Indication: ASPERGILLUS INFECTION
     Dosage: 200 MG, X 21 DAYS
     Route: 048
     Dates: start: 20150607, end: 20150706
  5. CLEXAN [Concomitant]
     Indication: PROPHYLAXIS
     Dosage: 40 MG, QD
     Route: 058
  6. LYRICA [Concomitant]
     Active Substance: PREGABALIN
     Indication: NEURALGIA
     Dosage: 50 MG, X 21 DAYS
     Route: 048
     Dates: start: 20150607, end: 20150706

REACTIONS (4)
  - Activities of daily living impaired [Recovered/Resolved]
  - Tremor [Recovered/Resolved]
  - Grip strength decreased [Recovered/Resolved]
  - Cytokine release syndrome [Unknown]

NARRATIVE: CASE EVENT DATE: 20150610
